FAERS Safety Report 4387638-5 (Version None)
Quarter: 2004Q2

REPORT INFORMATION
  Report Type: 
  Country: None (occurrence: None)
  Receive Date: 20040630
  Receipt Date: 20040524
  Transmission Date: 20050107
  Serious: No
  Sender: FDA-Public Use
  Company Number: US-GLAXOSMITHKLINE-A0511910A

PATIENT
  Age: 65 Year
  Sex: Female

DRUGS (6)
  1. ADVAIR HFA [Suspect]
     Indication: ASTHMA
     Dosage: 500MCG TWICE PER DAY
     Route: 055
     Dates: start: 20040101
  2. SINGULAIR [Concomitant]
  3. MAXAIR [Concomitant]
  4. PRILOSEC [Concomitant]
  5. LASIX [Concomitant]
  6. POTASSIUM [Concomitant]

REACTIONS (3)
  - FEELING ABNORMAL [None]
  - PHARMACEUTICAL PRODUCT COMPLAINT [None]
  - RETCHING [None]
